FAERS Safety Report 6293168-6 (Version None)
Quarter: 2009Q3

REPORT INFORMATION
  Report Type: 
  Country: None (occurrence: None)
  Receive Date: 20090731
  Receipt Date: 20090731
  Transmission Date: 20100115
  Serious: Yes (Other)
  Sender: FDA-Public Use
  Company Number: GB-TEVA-028426

PATIENT
  Age: 68 Year
  Sex: Male
  Weight: 78 kg

DRUGS (9)
  1. BISELECT [Suspect]
  2. AMIODARONE [Suspect]
  3. ACIPIMOX [Suspect]
     Dosage: 250 MG, BID
  4. ASPIRIN [Suspect]
     Dosage: 75 MG, QD
  5. DIGOXIN [Suspect]
     Dosage: 0.125 MG, QD
  6. EZETROL [Suspect]
     Dosage: 10 MG, QD
  7. FUROSEMIDE [Suspect]
     Dosage: 80 MG, BID
  8. LANSOPRAZOLE [Suspect]
     Dosage: 30 MG, QD
  9. PERINDOPRIL [Suspect]
     Dosage: 2 MG, QD

REACTIONS (11)
  - ATRIAL FIBRILLATION [None]
  - CARDIAC MURMUR [None]
  - DIZZINESS [None]
  - DYSPNOEA [None]
  - FATIGUE [None]
  - FEELING ABNORMAL [None]
  - LEFT VENTRICULAR DYSFUNCTION [None]
  - OEDEMA [None]
  - PARAESTHESIA [None]
  - VENOUS PRESSURE JUGULAR INCREASED [None]
  - VENTRICULAR TACHYCARDIA [None]
